FAERS Safety Report 15057561 (Version 8)
Quarter: 2022Q1

REPORT INFORMATION
  Report Type: Other
  Country: ES (occurrence: ES)
  Receive Date: 20180625
  Receipt Date: 20220311
  Transmission Date: 20220423
  Serious: Yes (Other)
  Sender: FDA-Public Use
  Company Number: ES-SA-2018SA054126

PATIENT
  Age: 14 Year
  Sex: Female

DRUGS (17)
  1. DOXORUBICIN [Suspect]
     Active Substance: DOXORUBICIN
     Indication: Ewing^s sarcoma
     Dosage: DAYS 1-3?EVERY THREE WEEKS X 6 CYCLES
     Route: 042
     Dates: start: 200904
  2. DOXORUBICIN [Suspect]
     Active Substance: DOXORUBICIN
     Route: 065
  3. ETOPOSIDE [Suspect]
     Active Substance: ETOPOSIDE
     Indication: Ewing^s sarcoma
     Dosage: DAYS 1-3 EVERY 3 WEEKS
     Route: 042
     Dates: start: 200904
  4. ETOPOSIDE [Suspect]
     Active Substance: ETOPOSIDE
     Route: 065
  5. BEVACIZUMAB [Suspect]
     Active Substance: BEVACIZUMAB
     Indication: Ewing^s sarcoma
     Dosage: EVERY 21 DAYS X 5 CYCLES
     Route: 042
     Dates: start: 201004
  6. VINCRISTINE [Suspect]
     Active Substance: VINCRISTINE
     Indication: Ewing^s sarcoma
     Dosage: ON DAY 1
     Route: 042
     Dates: start: 200910
  7. VINCRISTINE [Suspect]
     Active Substance: VINCRISTINE
     Indication: Ewing^s sarcoma
     Dosage: ON DAY 1, COMPLETED SIX CYCLES PRIOR TO SURGICAL RESECTION
     Route: 042
     Dates: start: 200904
  8. VINCRISTINE [Suspect]
     Active Substance: VINCRISTINE
     Route: 065
  9. IFOSFAMIDE [Suspect]
     Active Substance: IFOSFAMIDE
     Indication: Ewing^s sarcoma
     Dosage: DAYS 1-3 EVERY 3 WEEKS
     Route: 042
     Dates: start: 200904
  10. TEMOZOLOMIDE [Suspect]
     Active Substance: TEMOZOLOMIDE
     Indication: Ewing^s sarcoma
     Dosage: DAYS 1-21 EVERY 21 DAYS
     Route: 048
     Dates: start: 201004
  11. TEMOZOLOMIDE [Suspect]
     Active Substance: TEMOZOLOMIDE
     Route: 065
  12. IRINOTECAN [Suspect]
     Active Substance: IRINOTECAN
     Indication: Ewing^s sarcoma
     Dosage: DAYS 1-5 AND 8-13
     Route: 042
     Dates: start: 201004
  13. IRINOTECAN [Suspect]
     Active Substance: IRINOTECAN
     Route: 065
  14. CYCLOPHOSPHAMIDE [Suspect]
     Active Substance: CYCLOPHOSPHAMIDE
     Indication: Ewing^s sarcoma
     Route: 042
     Dates: start: 200910
  15. CYCLOPHOSPHAMIDE [Suspect]
     Active Substance: CYCLOPHOSPHAMIDE
     Route: 065
  16. ACTINOMYCIN D [Suspect]
     Active Substance: DACTINOMYCIN
     Indication: Ewing^s sarcoma
     Dosage: DAYS 1-2 EVERY 3 WEEKS
     Route: 042
     Dates: start: 200910
  17. ACTINOMYCIN D [Suspect]
     Active Substance: DACTINOMYCIN
     Route: 065

REACTIONS (5)
  - Drug ineffective [Unknown]
  - Therapeutic product effect incomplete [Unknown]
  - Off label use [Unknown]
  - Treatment failure [Recovered/Resolved]
  - Blood stem cell harvest failure [Recovered/Resolved]

NARRATIVE: CASE EVENT DATE: 20100701
